FAERS Safety Report 23517627 (Version 1)
Quarter: 2024Q1

REPORT INFORMATION
  Report Type: Spontaneous
  Country: IT (occurrence: IT)
  Receive Date: 20240213
  Receipt Date: 20240213
  Transmission Date: 20240410
  Serious: Yes (Other)
  Sender: FDA-Public Use
  Company Number: IT-SANDOZ-SDZ2024IT010554

PATIENT
  Age: 14 Year
  Sex: Male

DRUGS (6)
  1. AZACITIDINE [Suspect]
     Active Substance: AZACITIDINE
     Indication: Acute myeloid leukaemia
     Dosage: 125 MG,7 DAYS)
  2. AZACITIDINE [Suspect]
     Active Substance: AZACITIDINE
     Indication: Shwachman-Diamond syndrome
  3. AZACITIDINE [Suspect]
     Active Substance: AZACITIDINE
     Indication: Myelodysplastic syndrome
  4. VENETOCLAX [Suspect]
     Active Substance: VENETOCLAX
     Indication: Acute myeloid leukaemia
     Dosage: 800 MG, QD
  5. VENETOCLAX [Suspect]
     Active Substance: VENETOCLAX
     Indication: Myelodysplastic syndrome
     Dosage: 100 MG, QD
  6. VENETOCLAX [Suspect]
     Active Substance: VENETOCLAX
     Indication: Shwachman-Diamond syndrome

REACTIONS (5)
  - Urticaria [Recovered/Resolved]
  - Stenotrophomonas infection [Unknown]
  - Stomatitis [Unknown]
  - Staphylococcal sepsis [Unknown]
  - Escherichia sepsis [Unknown]
